FAERS Safety Report 20601074 (Version 2)
Quarter: 2023Q1

REPORT INFORMATION
  Report Type: Spontaneous
  Country: JP (occurrence: JP)
  Receive Date: 20220316
  Receipt Date: 20230203
  Transmission Date: 20230417
  Serious: Yes (Other)
  Sender: FDA-Public Use
  Company Number: JP-ASTELLAS-2021JP018543

PATIENT
  Age: 54 Year
  Sex: Female

DRUGS (5)
  1. ROXADUSTAT [Suspect]
     Active Substance: ROXADUSTAT
     Indication: Nephrogenic anaemia
     Route: 048
     Dates: start: 20210604
  2. ROXADUSTAT [Suspect]
     Active Substance: ROXADUSTAT
     Route: 048
     Dates: start: 20210624
  3. ROXADUSTAT [Suspect]
     Active Substance: ROXADUSTAT
     Route: 048
     Dates: start: 20210716
  4. TACROLIMUS [Suspect]
     Active Substance: TACROLIMUS
     Indication: Renal transplant
     Dosage: UNK UNK, UNKNOWN FREQ.
     Route: 065
  5. DARBEPOETIN ALFA [Concomitant]
     Active Substance: DARBEPOETIN ALFA
     Indication: Nephrogenic anaemia
     Route: 065

REACTIONS (13)
  - Corneal bleeding [Recovered/Resolved]
  - Haemorrhage subcutaneous [Recovered/Resolved]
  - Renal impairment [Not Recovered/Not Resolved]
  - Vasculitis [Unknown]
  - Thrombotic microangiopathy [Unknown]
  - Protein urine present [Not Recovered/Not Resolved]
  - Erythema [Unknown]
  - Erythema [Unknown]
  - Toxicity to various agents [Unknown]
  - Petechiae [Unknown]
  - Product use issue [Unknown]
  - Off label use [Unknown]
  - Product use issue [Unknown]

NARRATIVE: CASE EVENT DATE: 20210401
